FAERS Safety Report 23986883 (Version 1)
Quarter: 2024Q2

REPORT INFORMATION
  Report Type: Spontaneous
  Country: US (occurrence: US)
  Receive Date: 20240618
  Receipt Date: 20240618
  Transmission Date: 20240715
  Serious: No
  Sender: FDA-Public Use
  Company Number: US-SA-SAC20240610000687

PATIENT

DRUGS (1)
  1. LARONIDASE [Suspect]
     Active Substance: LARONIDASE
     Indication: Mucopolysaccharidosis I
     Dosage: 20.3 UNITS UNSPECIFIED, QW
     Route: 042
     Dates: start: 20070205

REACTIONS (2)
  - Bone pain [Recovered/Resolved]
  - Inappropriate schedule of product administration [Unknown]
